FAERS Safety Report 24097685 (Version 1)
Quarter: 2024Q3

REPORT INFORMATION
  Report Type: Spontaneous
  Country: US (occurrence: US)
  Receive Date: 20240716
  Receipt Date: 20240716
  Transmission Date: 20241017
  Serious: No
  Sender: PERRIGO
  Company Number: US-PERRIGO-24US004084

PATIENT
  Sex: Male

DRUGS (1)
  1. IBUPROFEN\PHENYLEPHRINE HYDROCHLORIDE [Suspect]
     Active Substance: IBUPROFEN\PHENYLEPHRINE HYDROCHLORIDE
     Indication: Ear congestion
     Dosage: 2 TABLETS, QD
     Route: 048
     Dates: start: 20240417

REACTIONS (1)
  - Drug ineffective for unapproved indication [Unknown]
